FAERS Safety Report 19157251 (Version 2)
Quarter: 2021Q2

REPORT INFORMATION
  Report Type: Spontaneous
  Country: US (occurrence: US)
  Receive Date: 20210420
  Receipt Date: 20210519
  Transmission Date: 20210717
  Serious: No
  Sender: FDA-Public Use
  Company Number: US-LUPIN PHARMACEUTICALS INC.-2021-04787

PATIENT
  Age: 17 Year
  Sex: Male

DRUGS (1)
  1. VANCOMYCIN HYDROCHLORIDE CAPSULES USP 125 MG [Suspect]
     Active Substance: VANCOMYCIN HYDROCHLORIDE
     Indication: CLOSTRIDIUM DIFFICILE INFECTION
     Dosage: 125 MILLIGRAM, QID
     Route: 048

REACTIONS (1)
  - Drug ineffective [Unknown]
